FAERS Safety Report 23261789 (Version 2)
Quarter: 2024Q1

REPORT INFORMATION
  Report Type: Spontaneous
  Country: US (occurrence: US)
  Receive Date: 20231205
  Receipt Date: 20240110
  Transmission Date: 20240410
  Serious: Yes (Death, Other)
  Sender: FDA-Public Use
  Company Number: US-BRISTOL-MYERS SQUIBB COMPANY-2023-171398

PATIENT
  Age: 86 Year
  Sex: Female

DRUGS (1)
  1. POMALYST [Suspect]
     Active Substance: POMALIDOMIDE
     Indication: Plasma cell myeloma
     Dosage: FREQUENCY - EVERYDAY FOR 21 DAYS AND FOLLOWED BY 7 DAYS OFF. THERAPY END DATE- END OF SEP-2023
     Route: 048
     Dates: start: 20230912

REACTIONS (1)
  - Plasma cell myeloma [Fatal]
